FAERS Safety Report 7904522-8 (Version None)
Quarter: 2011Q4

REPORT INFORMATION
  Report Type: 
  Country: None (occurrence: None)
  Receive Date: 20111109
  Receipt Date: 20111104
  Transmission Date: 20120403
  Serious: Yes (Other)
  Sender: FDA-Public Use
  Company Number: US-PFIZER INC-2011044431

PATIENT
  Sex: Female

DRUGS (3)
  1. CHANTIX [Suspect]
     Indication: SMOKING CESSATION THERAPY
     Dosage: 1 MG, UNK
     Dates: start: 20070127, end: 20070215
  2. CHANTIX [Suspect]
     Dosage: 1 MG, UNK
     Dates: start: 20070409, end: 20070501
  3. CHANTIX [Suspect]
     Dosage: 1 MG, UNK
     Dates: start: 20071220, end: 20080519

REACTIONS (9)
  - MENTAL DISORDER [None]
  - ABNORMAL BEHAVIOUR [None]
  - DEPRESSION [None]
  - EMOTIONAL DISTRESS [None]
  - LOSS OF CONSCIOUSNESS [None]
  - ANXIETY [None]
  - AGGRESSION [None]
  - INJURY [None]
  - SUICIDAL IDEATION [None]
